FAERS Safety Report 6051032-1 (Version None)
Quarter: 2009Q1

REPORT INFORMATION
  Report Type: 
  Country: None (occurrence: None)
  Receive Date: 20090126
  Receipt Date: 20080117
  Transmission Date: 20090719
  Serious: No
  Sender: FDA-Public Use
  Company Number: US-TYCO HEALTHCARE/MALLINCKRODT-T200800055

PATIENT

DRUGS (3)
  1. OPTIRAY 320 [Suspect]
     Indication: COMPUTERISED TOMOGRAM ABDOMEN
     Dosage: 100 ML, SINGLE
     Route: 042
     Dates: start: 20080107, end: 20080107
  2. OTHER ANTI-ASTHMATICS, INHALANTS [Concomitant]
     Indication: HYPERSENSITIVITY
     Route: 050
  3. EPIPEN                             /00003901/ [Concomitant]
     Dosage: UNK, PRN

REACTIONS (1)
  - HYPERSENSITIVITY [None]
